FAERS Safety Report 8312978-4 (Version None)
Quarter: 2012Q2

REPORT INFORMATION
  Report Type: 
  Country: None (occurrence: None)
  Receive Date: 20120426
  Receipt Date: 20120416
  Transmission Date: 20120825
  Serious: Yes (Hospitalization)
  Sender: FDA-Public Use
  Company Number: CA-JNJFOC-20120407035

PATIENT
  Sex: Male
  Weight: 97 kg

DRUGS (1)
  1. REMICADE [Suspect]
     Indication: RHEUMATOID ARTHRITIS
     Dosage: X 52 WEEKS
     Route: 042
     Dates: start: 20090621

REACTIONS (2)
  - CHEST PAIN [None]
  - DIABETES MELLITUS [None]
